FAERS Safety Report 18593102 (Version 2)
Quarter: 2020Q4

REPORT INFORMATION
  Report Type: Spontaneous
  Country: US (occurrence: US)
  Receive Date: 20201208
  Receipt Date: 20201221
  Transmission Date: 20210114
  Serious: No
  Sender: FDA-Public Use
  Company Number: US-PHARMING-PHAUS2020000446

PATIENT

DRUGS (1)
  1. RUCONEST [Suspect]
     Active Substance: HUMAN C1-ESTERASE INHIBITOR
     Indication: HEREDITARY ANGIOEDEMA
     Dosage: 4200 IU, AS NEEDED
     Route: 042
     Dates: start: 20180717

REACTIONS (3)
  - Hereditary angioedema [Not Recovered/Not Resolved]
  - Dental care [Unknown]
  - Product availability issue [Unknown]

NARRATIVE: CASE EVENT DATE: 20201127
